FAERS Safety Report 7476300-8 (Version None)
Quarter: 2011Q2

REPORT INFORMATION
  Report Type: 
  Country: None (occurrence: None)
  Receive Date: 20110510
  Receipt Date: 20110510
  Transmission Date: 20111010
  Serious: No
  Sender: FDA-Public Use
  Company Number: None

PATIENT
  Sex: Female

DRUGS (1)
  1. XGEVA 120 MG [Suspect]
     Dosage: 120 MG ONCE SQ
     Route: 058
     Dates: start: 20110424

REACTIONS (1)
  - PANCREATITIS [None]
